FAERS Safety Report 19410886 (Version 1)
Quarter: 2021Q2

REPORT INFORMATION
  Report Type: Spontaneous
  Country: US (occurrence: US)
  Receive Date: 20210614
  Receipt Date: 20210614
  Transmission Date: 20210717
  Serious: Yes (Hospitalization)
  Sender: FDA-Public Use
  Company Number: None

PATIENT
  Age: 21 Year
  Sex: Female
  Weight: 49.5 kg

DRUGS (1)
  1. CBD DROPS LUCID BLOOD ORANGE 1000MG CBD HEMP EXTRACT [Suspect]
     Active Substance: CANNABIDIOL\HERBALS
     Indication: ANXIETY
     Dosage: ?          QUANTITY:1 BOTTLE;?
     Route: 048
     Dates: start: 20200913, end: 20201005

REACTIONS (5)
  - Delusion [None]
  - Hallucination, visual [None]
  - Intentional product use issue [None]
  - Mania [None]
  - Suicide attempt [None]

NARRATIVE: CASE EVENT DATE: 20201002
